FAERS Safety Report 9089109 (Version 1)
Quarter: 2013Q1

REPORT INFORMATION
  Report Type: Report from Study
  Country: FI (occurrence: FI)
  Receive Date: 20130201
  Receipt Date: 20130201
  Transmission Date: 20140127
  Serious: Yes (Hospitalization)
  Sender: FDA-Public Use
  Company Number: FI-MUTUAL PHARMACEUTICAL COMPANY, INC.-IBPF20130005

PATIENT
  Age: 40 Year
  Sex: Male
  Weight: 108 kg

DRUGS (8)
  1. BURANA [Suspect]
     Indication: RHEUMATOID ARTHRITIS
     Route: 048
     Dates: start: 20110316, end: 20120816
  2. PREDNISOLON [Suspect]
     Indication: RHEUMATOID ARTHRITIS
     Route: 048
     Dates: start: 20110116, end: 2012
  3. STUDY DRUG [Suspect]
     Indication: RHEUMATOID ARTHRITIS
     Route: 048
     Dates: start: 20101031, end: 20120815
  4. OMEPRAZOL RATIOPHARM [Concomitant]
     Indication: PROPHYLAXIS AGAINST GASTROINTESTINAL ULCER
     Route: 048
     Dates: start: 20051013, end: 20120816
  5. SIMVASTATIN [Concomitant]
     Indication: HYPERCHOLESTEROLAEMIA
     Route: 048
     Dates: start: 20120620
  6. CALCICHEW D3 FORTE [Concomitant]
     Indication: OSTEOPOROSIS PROPHYLAXIS
     Route: 048
     Dates: start: 20080416
  7. FOLVITE [Concomitant]
     Indication: PROPHYLAXIS
     Route: 048
     Dates: start: 20080415
  8. METOJECT [Concomitant]
     Indication: RHEUMATOID ARTHRITIS
     Route: 058
     Dates: start: 20081103, end: 20120816

REACTIONS (2)
  - Diverticulitis [None]
  - Diverticular perforation [None]
